FAERS Safety Report 20664387 (Version 1)
Quarter: 2022Q2

REPORT INFORMATION
  Report Type: Spontaneous
  Country: US (occurrence: None)
  Receive Date: 20220401
  Receipt Date: 20220401
  Transmission Date: 20220721
  Serious: Yes (Hospitalization, Other)
  Sender: FDA-Public Use
  Company Number: 2022A126853

PATIENT
  Age: 75 Year
  Sex: Female
  Weight: 78.9 kg

DRUGS (4)
  1. CRESTOR [Suspect]
     Active Substance: ROSUVASTATIN CALCIUM
     Indication: Blood cholesterol increased
     Route: 048
     Dates: end: 2017
  2. CRESTOR [Suspect]
     Active Substance: ROSUVASTATIN CALCIUM
     Indication: Transient ischaemic attack
     Route: 048
     Dates: end: 2017
  3. CRESTOR [Suspect]
     Active Substance: ROSUVASTATIN CALCIUM
     Indication: Transient ischaemic attack
     Route: 048
     Dates: start: 202203
  4. CRESTOR [Suspect]
     Active Substance: ROSUVASTATIN CALCIUM
     Indication: Transient ischaemic attack
     Route: 048
     Dates: start: 20220323

REACTIONS (11)
  - Anal cancer [Recovered/Resolved]
  - Transient ischaemic attack [Recovered/Resolved]
  - Atrial fibrillation [Unknown]
  - Cerebral thrombosis [Recovered/Resolved]
  - Aortic aneurysm [Not Recovered/Not Resolved]
  - Radiation injury [Unknown]
  - Diarrhoea [Recovering/Resolving]
  - Asthenia [Unknown]
  - Constipation [Not Recovered/Not Resolved]
  - Fatigue [Recovering/Resolving]
  - Therapy cessation [Unknown]

NARRATIVE: CASE EVENT DATE: 20200101
